FAERS Safety Report 5135465-3 (Version None)
Quarter: 2006Q4

REPORT INFORMATION
  Report Type: 
  Country: None (occurrence: None)
  Receive Date: 20061020
  Receipt Date: 20061011
  Transmission Date: 20070319
  Serious: Yes (Hospitalization)
  Sender: FDA-Public Use
  Company Number: 163-C5013-06040154

PATIENT
  Age: 87 Year
  Sex: Female
  Weight: 40 kg

DRUGS (14)
  1. CC-5013 (LENALIDOMIDE) (CAPSULES) REVLIMID [Suspect]
     Indication: MULTIPLE MYELOMA
     Dosage: 25 MG, QD ON DAYS 1-21, EVERY 28 DAYS, ORAL
     Route: 048
     Dates: start: 20060327, end: 20060429
  2. DEXAMETHASONE TAB [Suspect]
     Indication: MULTIPLE MYELOMA
     Dosage: 40 MG, QD ON DAYS 1-4, 9-12, 17-20, EVERY 28 DAYS, ORAL
     Route: 048
     Dates: start: 20060327, end: 20060330
  3. DARVOCET [Concomitant]
  4. DURAGESIC-100 [Concomitant]
  5. FERROUS SULFATE TAB [Concomitant]
  6. MIRALAX [Concomitant]
  7. PROTONIX [Concomitant]
  8. SYNTHROID [Concomitant]
  9. VITAMINS [Concomitant]
  10. XALATAN [Concomitant]
  11. LISINOPRIL [Concomitant]
  12. LASIX [Concomitant]
  13. FOSAMAX [Concomitant]
  14. LEVAQUIN [Concomitant]

REACTIONS (10)
  - APHASIA [None]
  - CEREBRAL ATROPHY [None]
  - CONFUSIONAL STATE [None]
  - DELIRIUM [None]
  - DEPRESSION [None]
  - ENCEPHALOPATHY [None]
  - HAEMOGLOBIN DECREASED [None]
  - HYPONATRAEMIA [None]
  - SPEECH DISORDER [None]
  - TREMOR [None]
